FAERS Safety Report 16413523 (Version 2)
Quarter: 2019Q2

REPORT INFORMATION
  Report Type: Report from Study
  Country: ZA (occurrence: ZA)
  Receive Date: 20190611
  Receipt Date: 20190613
  Transmission Date: 20190711
  Serious: Yes (Hospitalization, Other)
  Sender: FDA-Public Use
  Company Number: ZA-VIIV HEALTHCARE LIMITED-ZA2019GSK091875

PATIENT
  Age: 21 Year
  Sex: Female

DRUGS (6)
  1. EMTRICITABINE + TENOFOVIR DISOPROXIL FUMARATE TABLETS [Concomitant]
     Active Substance: EMTRICITABINE\TENOFOVIR DISOPROXIL FUMARATE
     Dosage: 300/200 MG
     Dates: start: 20180309, end: 20180407
  2. LAMIVUDINE. [Concomitant]
     Active Substance: LAMIVUDINE
     Dosage: 300 MG, UNK
     Dates: start: 20180407
  3. ABACAVIR. [Concomitant]
     Active Substance: ABACAVIR
     Dosage: 600 MG, UNK
     Dates: start: 20180407
  4. DOLUTEGRAVIR [Suspect]
     Active Substance: DOLUTEGRAVIR
     Indication: HIV INFECTION
     Dosage: 50 MG, QD
     Route: 048
     Dates: start: 20180309
  5. FOLIC ACID. [Concomitant]
     Active Substance: FOLIC ACID
     Dosage: 5 MG, UNK
     Dates: start: 20180309, end: 20180323
  6. FERROUS SULFATE. [Concomitant]
     Active Substance: FERROUS SULFATE
     Dosage: 170 UG, UNK
     Dates: start: 20180309, end: 20180323

REACTIONS (2)
  - Renal impairment [Recovered/Resolved]
  - Pre-eclampsia [Recovered/Resolved]

NARRATIVE: CASE EVENT DATE: 20180319
